FAERS Safety Report 9447506 (Version 2)
Quarter: 2013Q3

REPORT INFORMATION
  Report Type: Spontaneous
  Country: US (occurrence: US)
  Receive Date: 20130808
  Receipt Date: 20130913
  Transmission Date: 20140515
  Serious: No
  Sender: FDA-Public Use
  Company Number: US-PFIZER INC-2013226565

PATIENT
  Age: 72 Year
  Sex: Female
  Weight: 111.11 kg

DRUGS (2)
  1. ZYVOX [Suspect]
     Indication: URINARY TRACT INFECTION
     Dosage: 600 MG, 2X/DAY
     Route: 048
     Dates: start: 20130724
  2. INSULIN [Concomitant]
     Indication: DIABETES MELLITUS
     Dosage: UNK

REACTIONS (8)
  - Oropharyngeal pain [Unknown]
  - Pharyngeal inflammation [Unknown]
  - Throat irritation [Unknown]
  - Condition aggravated [Unknown]
  - Cough [Unknown]
  - Throat irritation [Unknown]
  - Pyrexia [Unknown]
  - Chills [Unknown]
